FAERS Safety Report 9801056 (Version 1)
Quarter: 2014Q1

REPORT INFORMATION
  Report Type: Spontaneous
  Country: ES (occurrence: ES)
  Receive Date: 20140107
  Receipt Date: 20140107
  Transmission Date: 20141002
  Serious: Yes (Life-Threatening, Hospitalization)
  Sender: FDA-Public Use
  Company Number: ES-SA-2014SA000578

PATIENT
  Age: 53 Year
  Sex: Male

DRUGS (11)
  1. THYMOGLOBULIN [Suspect]
     Indication: PROPHYLAXIS
     Dosage: 155MG
     Route: 042
     Dates: start: 20130315, end: 20130316
  2. FLUDARABINE PHOSPHATE [Suspect]
     Indication: PRODUCT USED FOR UNKNOWN INDICATION
     Dosage: 90MG
     Route: 042
     Dates: start: 20130315, end: 20130317
  3. BUSULFAN [Suspect]
     Indication: PRODUCT USED FOR UNKNOWN INDICATION
     Dosage: 230MG
     Route: 042
     Dates: start: 20130315, end: 20130316
  4. THIOTEPA [Suspect]
     Indication: PRODUCT USED FOR UNKNOWN INDICATION
     Dosage: 350MG
     Route: 042
     Dates: start: 20130314, end: 20130314
  5. ACICLOVIR [Concomitant]
     Dosage: 400MG/12H
     Route: 042
     Dates: start: 20130315
  6. FUROSEMIDE [Concomitant]
     Dosage: 20MG/8H
     Route: 042
     Dates: start: 20130313
  7. ITRACONAZOLE [Concomitant]
     Dosage: 250MG/12H
     Route: 042
     Dates: start: 20130314
  8. METHYLPREDNISOLONE [Concomitant]
     Dosage: 66MG
     Route: 042
     Dates: start: 20130315, end: 20130315
  9. ONDANSETRON [Concomitant]
     Dosage: 8MG/8H
     Route: 042
     Dates: start: 20130313
  10. PARACETAMOL [Concomitant]
     Dosage: 1GR A LAS 12H
     Route: 042
     Dates: start: 20130314
  11. RANITIDINE [Concomitant]
     Dosage: 1CP
     Route: 048
     Dates: start: 20130313

REACTIONS (5)
  - Capillaritis [Recovered/Resolved]
  - Hepatitis [Recovered/Resolved]
  - Renal failure acute [Recovered/Resolved]
  - Mucosal inflammation [Recovering/Resolving]
  - Pyrexia [Not Recovered/Not Resolved]
